FAERS Safety Report 9683425 (Version 1)
Quarter: 2013Q4

REPORT INFORMATION
  Report Type: Report from Study
  Country: US (occurrence: US)
  Receive Date: 20131112
  Receipt Date: 20131112
  Transmission Date: 20140711
  Serious: Yes (Life-Threatening)
  Sender: FDA-Public Use
  Company Number: US-ROCHE-1298677

PATIENT
  Age: 41 Year
  Sex: Male

DRUGS (12)
  1. NAPROSYN [Suspect]
     Indication: PRODUCT USED FOR UNKNOWN INDICATION
     Route: 065
  2. ALBUTEROL [Concomitant]
  3. ZITHROMAX [Concomitant]
  4. SYMBICORT [Concomitant]
  5. FLONASE [Concomitant]
  6. ATROVENT [Concomitant]
  7. DELTASONE [Concomitant]
  8. XOPENEX [Concomitant]
  9. AMBIEN [Concomitant]
  10. PEPCID [Concomitant]
  11. PRILOSEC [Concomitant]
  12. ZYFLO CR [Concomitant]

REACTIONS (2)
  - Pulmonary embolism [Unknown]
  - Pneumonia [Unknown]
